FAERS Safety Report 25483219 (Version 2)
Quarter: 2025Q3

REPORT INFORMATION
  Report Type: Spontaneous
  Country: US (occurrence: US)
  Receive Date: 20250626
  Receipt Date: 20250701
  Transmission Date: 20251020
  Serious: No
  Sender: PFIZER
  Company Number: US-PFIZER INC-PV202500075546

PATIENT
  Age: 56 Year
  Sex: Male

DRUGS (1)
  1. INLYTA [Suspect]
     Active Substance: AXITINIB

REACTIONS (6)
  - Fatigue [Unknown]
  - Pain [Not Recovered/Not Resolved]
  - Blood glucose decreased [Unknown]
  - Cortisol increased [Unknown]
  - Decreased appetite [Unknown]
  - Blood pressure increased [Unknown]

NARRATIVE: CASE EVENT DATE: 20250101
